FAERS Safety Report 9633712 (Version 1)
Quarter: 2013Q4

REPORT INFORMATION
  Report Type: Spontaneous
  Country: US (occurrence: US)
  Receive Date: 20131021
  Receipt Date: 20131021
  Transmission Date: 20140711
  Serious: No
  Sender: FDA-Public Use
  Company Number: US-PFIZER INC-2013296622

PATIENT
  Age: 40 Year
  Sex: Male
  Weight: 110.2 kg

DRUGS (2)
  1. CHANTIX [Suspect]
     Indication: SMOKING CESSATION THERAPY
     Dosage: 0.5 MG, 1X/DAY
     Route: 048
  2. CHANTIX [Suspect]
     Dosage: 2 UNKNOWN DOSES, AT SAME TIME
     Route: 048

REACTIONS (3)
  - Extra dose administered [Unknown]
  - Nausea [Unknown]
  - Asthenia [Unknown]
